FAERS Safety Report 4417232-9 (Version None)
Quarter: 2004Q2

REPORT INFORMATION
  Report Type: 
  Country: None (occurrence: None)
  Receive Date: 20040629
  Receipt Date: 20040126
  Transmission Date: 20050107
  Serious: Yes (Hospitalization, Other)
  Sender: FDA-Public Use
  Company Number: US_0401100175

PATIENT
  Age: 56 Year
  Sex: Female

DRUGS (2)
  1. INSULIN [Suspect]
  2. HUMALOG [Suspect]

REACTIONS (3)
  - BLOOD GLUCOSE INCREASED [None]
  - CHEMOTHERAPY [None]
  - HYPERSENSITIVITY [None]
